FAERS Safety Report 9406856 (Version 1)
Quarter: 2013Q3

REPORT INFORMATION
  Report Type: Spontaneous
  Country: GR (occurrence: GR)
  Receive Date: 20130718
  Receipt Date: 20130718
  Transmission Date: 20140515
  Serious: Yes (Other)
  Sender: FDA-Public Use
  Company Number: PHHY2013GR075643

PATIENT
  Age: 50 Year
  Sex: Female

DRUGS (2)
  1. EXFORGE [Suspect]
     Indication: HYPERTENSION
     Dosage: (160MG VALS/ 5MG AMLO)
  2. SALOSPIR [Concomitant]
     Indication: PROPHYLAXIS

REACTIONS (1)
  - Optic nerve disorder [Unknown]
